FAERS Safety Report 22603962 (Version 1)
Quarter: 2023Q2

REPORT INFORMATION
  Report Type: Spontaneous
  Country: US (occurrence: US)
  Receive Date: 20230615
  Receipt Date: 20230615
  Transmission Date: 20230722
  Serious: Yes (Other)
  Sender: FDA-Public Use
  Company Number: US-STRIDES ARCOLAB LIMITED-2023SP009530

PATIENT

DRUGS (2)
  1. RANITIDINE [Suspect]
     Active Substance: RANITIDINE
     Indication: Product used for unknown indication
     Dosage: UNK; RANITIDINE (OVER THE COUNTER)
     Route: 065
     Dates: start: 1994, end: 2021
  2. RANITIDINE [Suspect]
     Active Substance: RANITIDINE
     Dosage: UNK; RANITIDINE (ZANTAC) (OVER THE COUNTER)
     Route: 065
     Dates: start: 1994, end: 2021

REACTIONS (2)
  - Oesophageal carcinoma [Unknown]
  - Hepatic cancer [Unknown]

NARRATIVE: CASE EVENT DATE: 20210101
